FAERS Safety Report 9633269 (Version 1)
Quarter: 2013Q4

REPORT INFORMATION
  Report Type: Spontaneous
  Country: US (occurrence: None)
  Receive Date: 20131018
  Receipt Date: 20131018
  Transmission Date: 20140711
  Serious: Yes (Life-Threatening)
  Sender: FDA-Public Use
  Company Number: None

PATIENT
  Age: 31 Year
  Sex: Male
  Weight: 65.77 kg

DRUGS (1)
  1. NUVIGIL [Suspect]
     Route: 048
     Dates: end: 20131016

REACTIONS (6)
  - Muscle spasms [None]
  - Malaise [None]
  - Tremor [None]
  - Speech disorder [None]
  - Abasia [None]
  - Extrapyramidal disorder [None]
